FAERS Safety Report 9392869 (Version 1)
Quarter: 2013Q3

REPORT INFORMATION
  Report Type: Spontaneous
  Country: US (occurrence: US)
  Receive Date: 20130710
  Receipt Date: 20130710
  Transmission Date: 20140515
  Serious: No
  Sender: FDA-Public Use
  Company Number: US-PFIZER INC-2013200450

PATIENT
  Age: 64 Year
  Sex: Female
  Weight: 61 kg

DRUGS (15)
  1. XELJANZ [Suspect]
     Dosage: 5 MG, 2X/DAY
     Route: 048
  2. PREDNISONE [Concomitant]
     Dosage: 5 MG, UNK
  3. VITAMIN B6 [Concomitant]
     Dosage: 250 MG, UNK
  4. CYMBALTA [Concomitant]
     Dosage: 20 MG, UNK
  5. VITAMIN D3 [Concomitant]
     Dosage: 1000 IU, UNK
  6. VITAMIN C [Concomitant]
     Dosage: 500 MG, UNK
  7. OMEGA 3 [Concomitant]
     Dosage: 1000 MG, UNK
  8. VITAMIN B12 [Concomitant]
     Dosage: 500 UG, UNK
  9. KLONOPIN [Concomitant]
     Dosage: 0.5 MG, UNK
  10. EXCEDRIN EXTRA STRENGTH [Concomitant]
     Dosage: UNK
  11. ABILIFY [Concomitant]
     Dosage: 2 MG, UNK
  12. NEXIUM [Concomitant]
     Dosage: 40 MG, UNK
  13. VYVANSE [Concomitant]
     Dosage: 20 MG, UNK
  14. OXYCONTIN [Concomitant]
     Dosage: 20 MG, UNK
  15. CLARITIN [Concomitant]
     Dosage: 10 MG, UNK

REACTIONS (2)
  - Nausea [Recovered/Resolved]
  - Abdominal pain upper [Recovered/Resolved]
